FAERS Safety Report 12914512 (Version 1)
Quarter: 2016Q4

REPORT INFORMATION
  Report Type: Spontaneous
  Country: US (occurrence: US)
  Receive Date: 20161106
  Receipt Date: 20161106
  Transmission Date: 20170207
  Serious: No
  Sender: FDA-Public Use
  Company Number: US-RELYPSA-RLY2016003179

PATIENT
  Age: 87 Year
  Sex: Female

DRUGS (21)
  1. VELTASSA [Suspect]
     Active Substance: PATIROMER
     Indication: HYPERKALAEMIA
     Dosage: 8.4 G, QD
     Route: 048
     Dates: start: 20160908
  2. DULCOLAX NOS [Concomitant]
     Active Substance: BISACODYL OR DOCUSATE SODIUM
  3. GAS-X [Concomitant]
     Active Substance: DIMETHICONE
  4. LIDOCAINE. [Concomitant]
     Active Substance: LIDOCAINE
  5. SIMVASTATIN. [Concomitant]
     Active Substance: SIMVASTATIN
  6. TUMS [Concomitant]
     Active Substance: CALCIUM CARBONATE
  7. ONDANSETRON [Concomitant]
     Active Substance: ONDANSETRON
  8. PEPCID [Concomitant]
     Active Substance: FAMOTIDINE
  9. RENVELA [Concomitant]
     Active Substance: SEVELAMER CARBONATE
  10. HYDROCODONE BITARTRATE AND ACETAMINOPHEN [Concomitant]
     Active Substance: ACETAMINOPHEN\HYDROCODONE BITARTRATE
  11. LOVENOX [Concomitant]
     Active Substance: ENOXAPARIN SODIUM
  12. FISH OIL [Concomitant]
     Active Substance: FISH OIL
  13. SENSIPAR [Concomitant]
     Active Substance: CINACALCET HYDROCHLORIDE
  14. SERTRALINE [Concomitant]
     Active Substance: SERTRALINE HYDROCHLORIDE
  15. BENZONATATE. [Concomitant]
     Active Substance: BENZONATATE
  16. MELATONIN [Concomitant]
     Active Substance: MELATONIN
  17. ALPRAZOLAM. [Concomitant]
     Active Substance: ALPRAZOLAM
  18. LEVOTHYROXIN [Concomitant]
     Active Substance: LEVOTHYROXINE
  19. PLAVIX [Concomitant]
     Active Substance: CLOPIDOGREL BISULFATE
  20. ULORIC [Concomitant]
     Active Substance: FEBUXOSTAT
  21. VITAMIN D [Concomitant]
     Active Substance: CHOLECALCIFEROL

REACTIONS (2)
  - Eructation [Not Recovered/Not Resolved]
  - Vascular access complication [Unknown]

NARRATIVE: CASE EVENT DATE: 201609
